FAERS Safety Report 15773240 (Version 1)
Quarter: 2018Q4

REPORT INFORMATION
  Report Type: Report from Study
  Country: IN (occurrence: IN)
  Receive Date: 20181228
  Receipt Date: 20181228
  Transmission Date: 20190205
  Serious: Yes (Other)
  Sender: FDA-Public Use
  Company Number: PHHY2018IN197116

PATIENT
  Age: 52 Year
  Sex: Female

DRUGS (1)
  1. GLIVEC [Suspect]
     Active Substance: IMATINIB MESYLATE
     Indication: CHRONIC MYELOID LEUKAEMIA
     Dosage: 400 MG, QD
     Route: 065

REACTIONS (9)
  - Oesophageal ulcer [Unknown]
  - Dizziness [Unknown]
  - Arterial thrombosis [Unknown]
  - Renal function test abnormal [Unknown]
  - Dyspnoea exertional [Unknown]
  - Nausea [Unknown]
  - Vomiting [Unknown]
  - Skin discolouration [Unknown]
  - Dyspnoea [Unknown]

NARRATIVE: CASE EVENT DATE: 201807
